FAERS Safety Report 4401398-0 (Version None)
Quarter: 2004Q3

REPORT INFORMATION
  Report Type: 
  Country: None (occurrence: None)
  Receive Date: 20040907
  Receipt Date: 20040419
  Transmission Date: 20050211
  Serious: No
  Sender: FDA-Public Use
  Company Number: US-BRISTOL-MYERS SQUIBB COMPANY-12564209

PATIENT
  Sex: Male

DRUGS (4)
  1. COUMADIN [Suspect]
     Indication: ATRIAL FIBRILLATION
     Route: 048
     Dates: start: 20040201
  2. TOPROL-XL [Concomitant]
  3. DIGITEK [Concomitant]
  4. THYROXINE [Concomitant]

REACTIONS (2)
  - DIZZINESS [None]
  - NAUSEA [None]
